FAERS Safety Report 5987549-5 (Version None)
Quarter: 2008Q4

REPORT INFORMATION
  Report Type: 
  Country: None (occurrence: None)
  Receive Date: 20081209
  Receipt Date: 20081201
  Transmission Date: 20090506
  Serious: Yes (Other)
  Sender: FDA-Public Use
  Company Number: DE-JNJFOC-20081006619

PATIENT
  Age: 50 Year
  Sex: Female

DRUGS (2)
  1. IMODIUM AD [Suspect]
     Indication: CROHN'S DISEASE
     Route: 048
  2. LEXOTANIL [Concomitant]
     Route: 048

REACTIONS (1)
  - INTENTIONAL DRUG MISUSE [None]
